FAERS Safety Report 12638299 (Version 1)
Quarter: 2016Q3

REPORT INFORMATION
  Report Type: Spontaneous
  Country: US (occurrence: US)
  Receive Date: 20160809
  Receipt Date: 20160809
  Transmission Date: 20161109
  Serious: No
  Sender: FDA-Public Use
  Company Number: US-SA-2016SA091886

PATIENT
  Sex: Female

DRUGS (12)
  1. PRALUENT [Suspect]
     Active Substance: ALIROCUMAB
     Indication: TYPE V HYPERLIPIDAEMIA
     Route: 065
  2. GABAPENTIN. [Concomitant]
     Active Substance: GABAPENTIN
  3. SYNTHROID [Concomitant]
     Active Substance: LEVOTHYROXINE SODIUM
  4. TYLENOL WITH CODEINE [Concomitant]
     Active Substance: ACETAMINOPHEN\CODEINE PHOSPHATE
  5. WARFARIN [Concomitant]
     Active Substance: WARFARIN
     Dosage: 10 MG, 1 MG, 2 MG AND 5 MG
  6. FUROSEMIDE. [Concomitant]
     Active Substance: FUROSEMIDE
  7. ALIROCUMAB PREFILLED PEN [Concomitant]
     Active Substance: ALIROCUMAB
     Indication: TYPE V HYPERLIPIDAEMIA
  8. ENOXAPARIN [Concomitant]
     Active Substance: ENOXAPARIN
  9. CEFUROXIME. [Concomitant]
     Active Substance: CEFUROXIME
  10. NITROGLYCERINE [Concomitant]
     Active Substance: NITROGLYCERIN
  11. BENICAR [Concomitant]
     Active Substance: OLMESARTAN MEDOXOMIL
  12. DILTIAZEM. [Concomitant]
     Active Substance: DILTIAZEM

REACTIONS (1)
  - Hypersensitivity [Not Recovered/Not Resolved]
